FAERS Safety Report 7786303-1 (Version None)
Quarter: 2011Q3

REPORT INFORMATION
  Report Type: 
  Country: None (occurrence: None)
  Receive Date: 20110929
  Receipt Date: 20110919
  Transmission Date: 20111222
  Serious: Yes (Hospitalization, Other)
  Sender: FDA-Public Use
  Company Number: PHHY2011DE19568

PATIENT
  Age: 36 Year
  Sex: Male
  Weight: 90 kg

DRUGS (9)
  1. AMLODIPINE/VALSARTAN/HYDROCHLOROTHIAZIDE [Suspect]
     Indication: HYPERTENSION
     Dosage: AMLODIPIN 10MG, VALSARTAN 320MG, HYDROCHLOROTHIAZIDE 25MG PER DAY
     Route: 048
     Dates: start: 20100701, end: 20110801
  2. DESFLURANE [Interacting]
     Indication: GENERAL ANAESTHESIA
  3. ACETAMINOPHEN [Concomitant]
     Dosage: UNK
     Dates: start: 20110108, end: 20110121
  4. ULTIVA [Interacting]
     Indication: GENERAL ANAESTHESIA
  5. CLORAZEPATE DIPOTASSIUM [Suspect]
     Indication: GENERAL ANAESTHESIA
  6. ARCOXIA [Concomitant]
     Dosage: UNK
     Dates: start: 20110108, end: 20110121
  7. PROPOFOL [Interacting]
     Indication: GENERAL ANAESTHESIA
  8. MIVACRON [Interacting]
     Indication: GENERAL ANAESTHESIA
  9. CLONIDINE [Interacting]

REACTIONS (11)
  - INSOMNIA [None]
  - ANAL FISTULA [None]
  - DRUG INTERACTION [None]
  - DIZZINESS [None]
  - SLEEP APNOEA SYNDROME [None]
  - ANTICHOLINERGIC SYNDROME [None]
  - DYSURIA [None]
  - RESPIRATORY ARREST [None]
  - APNOEA [None]
  - SOMNOLENCE [None]
  - GAIT DISTURBANCE [None]
